FAERS Safety Report 15872298 (Version 1)
Quarter: 2019Q1

REPORT INFORMATION
  Report Type: Other
  Country: US (occurrence: US)
  Receive Date: 20190126
  Receipt Date: 20190126
  Transmission Date: 20190417
  Serious: No
  Sender: FDA-Public Use
  Company Number: US-ACORDA-ACO_147976_2018

PATIENT

DRUGS (1)
  1. AMPYRA [Suspect]
     Active Substance: DALFAMPRIDINE

REACTIONS (5)
  - Hypokinesia [Unknown]
  - Fall [Unknown]
  - Gait disturbance [Unknown]
  - Balance disorder [Unknown]
  - Therapy cessation [Unknown]
